FAERS Safety Report 23480377 (Version 1)
Quarter: 2024Q1

REPORT INFORMATION
  Report Type: Spontaneous
  Country: GB (occurrence: GB)
  Receive Date: 20240205
  Receipt Date: 20240205
  Transmission Date: 20240410
  Serious: No
  Sender: FDA-Public Use
  Company Number: None

PATIENT
  Age: 73 Year
  Sex: Male
  Weight: 115 kg

DRUGS (9)
  1. EZETIMIBE [Suspect]
     Active Substance: EZETIMIBE
     Indication: Ill-defined disorder
     Dosage: UNK
     Route: 065
     Dates: start: 20230301
  2. EZETIMIBE [Suspect]
     Active Substance: EZETIMIBE
     Dosage: UNK, QD (TAKE ONE DAILY)
     Route: 065
     Dates: start: 20230331
  3. AMLODIPINE [Concomitant]
     Active Substance: AMLODIPINE BESYLATE
     Indication: Ill-defined disorder
     Dosage: UNK, QD (ONE TO BE TAKEN DAILY)
     Route: 065
     Dates: start: 20230425
  4. ASPIRIN [Concomitant]
     Active Substance: ASPIRIN
     Indication: Ill-defined disorder
     Dosage: UNK, QD (ONE TO BE TAKEN DAILY)
     Route: 065
     Dates: start: 20230201
  5. ATENOLOL [Concomitant]
     Active Substance: ATENOLOL
     Indication: Ill-defined disorder
     Dosage: UNK, QD (ONE TO BE TAKEN DAILY)
     Route: 065
     Dates: start: 20221108
  6. CHOLECALCIFEROL [Concomitant]
     Active Substance: CHOLECALCIFEROL
     Indication: Ill-defined disorder
     Dosage: UNK, QD (ONE TO BE TAKEN DAILY)
     Route: 065
     Dates: start: 20221108
  7. FOLIC ACID [Concomitant]
     Active Substance: FOLIC ACID
     Indication: Ill-defined disorder
     Dosage: UNK, QD (ONE TO BE TAKEN DAILY)
     Route: 065
     Dates: start: 20221108
  8. ROSUVASTATIN [Concomitant]
     Active Substance: ROSUVASTATIN
     Indication: Ill-defined disorder
     Dosage: UNK, QD (ONE TO BE TAKEN DAILY TO HELP CHOLESTEROL LEVELS)
     Route: 065
     Dates: start: 20230216, end: 20230516
  9. TACROLIMUS [Concomitant]
     Active Substance: TACROLIMUS
     Indication: Ill-defined disorder
     Dosage: UNK, QD, (USE ONCE DAILY)
     Route: 065
     Dates: start: 20221108

REACTIONS (1)
  - Myalgia [Recovered/Resolved]

NARRATIVE: CASE EVENT DATE: 20230401
